FAERS Safety Report 20152128 (Version 1)
Quarter: 2021Q4

REPORT INFORMATION
  Report Type: Spontaneous
  Country: IT (occurrence: IT)
  Receive Date: 20211206
  Receipt Date: 20211206
  Transmission Date: 20220303
  Serious: Yes (Other)
  Sender: FDA-Public Use
  Company Number: None

PATIENT
  Sex: Male
  Weight: 1 kg

DRUGS (3)
  1. ACETAMINOPHEN [Suspect]
     Active Substance: ACETAMINOPHEN
     Indication: Foetal exposure during pregnancy
     Dosage: 5 G, QD
     Route: 064
     Dates: start: 20181101, end: 20181214
  2. PREDNISONE [Suspect]
     Active Substance: PREDNISONE
     Indication: Foetal exposure during pregnancy
     Dosage: UNK
     Route: 064
     Dates: start: 20181101, end: 20181216
  3. CIMZIA [Suspect]
     Active Substance: CERTOLIZUMAB PEGOL
     Indication: Foetal exposure during pregnancy
     Dosage: 1 DOSAGE FORM, CYCLIC
     Route: 064
     Dates: start: 20181216, end: 20190116

REACTIONS (3)
  - Low birth weight baby [Recovering/Resolving]
  - Premature baby [Recovering/Resolving]
  - Bronchial dysplasia [Recovering/Resolving]

NARRATIVE: CASE EVENT DATE: 20190130
